FAERS Safety Report 8375553-1 (Version None)
Quarter: 2012Q1

REPORT INFORMATION
  Report Type: 
  Country: None (occurrence: None)
  Receive Date: 20120323
  Receipt Date: 20110331
  Transmission Date: 20120608
  Serious: Yes (Other)
  Sender: FDA-Public Use
  Company Number: 163-21880-11020915

PATIENT
  Age: 78 Year
  Sex: Male
  Weight: 91.3 kg

DRUGS (2)
  1. REVLIMID [Suspect]
     Indication: MULTIPLE MYELOMA
     Dosage: 25 MG, DAILY FOR 14 DAYS ON THEN 7 OFF, PO
     Route: 048
     Dates: start: 20090615
  2. REVLIMID [Suspect]

REACTIONS (5)
  - BONE DISORDER [None]
  - RED BLOOD CELL COUNT DECREASED [None]
  - ANAEMIA [None]
  - INTERNATIONAL NORMALISED RATIO DECREASED [None]
  - NEUROPATHY PERIPHERAL [None]
